FAERS Safety Report 16566060 (Version 1)
Quarter: 2019Q3

REPORT INFORMATION
  Report Type: Spontaneous
  Country: CZ (occurrence: CZ)
  Receive Date: 20190712
  Receipt Date: 20190712
  Transmission Date: 20191004
  Serious: Yes (Death, Life-Threatening, Hospitalization, Other)
  Sender: FDA-Public Use
  Company Number: CZ-PFIZER INC-2019295517

PATIENT
  Age: 66 Year
  Sex: Female
  Weight: 110 kg

DRUGS (3)
  1. LINEZOLID. [Suspect]
     Active Substance: LINEZOLID
     Indication: BACTERIAL DISEASE CARRIER
     Dosage: 600 MG, 2X/DAY (1-0-1, ONCE IN THE MORNING, ONCE IN THE EVENING)
     Route: 048
     Dates: start: 201906
  2. DALACIN [CLINDAMYCIN PHOSPHATE] [Concomitant]
  3. CITALOPRAM [Concomitant]
     Active Substance: CITALOPRAM HYDROBROMIDE

REACTIONS (5)
  - Hyponatraemia [Recovered/Resolved]
  - Death [Fatal]
  - Hypochloraemia [Recovered/Resolved]
  - Hypokalaemia [Recovered/Resolved]
  - Hyperpyrexia [Recovered/Resolved]

NARRATIVE: CASE EVENT DATE: 201906
